FAERS Safety Report 8956642 (Version 1)
Quarter: 2012Q4

REPORT INFORMATION
  Report Type: 
  Country: ES (occurrence: ES)
  Receive Date: 20121210
  Receipt Date: 20121210
  Transmission Date: 20130627
  Serious: Yes (Other)
  Sender: FDA-Public Use
  Company Number: ES-JNJFOC-20121202206

PATIENT

DRUGS (4)
  1. DOXORUBICIN [Suspect]
     Indication: SARCOMA
     Route: 042
  2. IFOSFAMIDE [Suspect]
     Indication: SARCOMA
     Route: 065
  3. RADIOTHERAPY [Suspect]
     Indication: SARCOMA
     Route: 065
  4. RADIOTHERAPY [Suspect]
     Indication: SARCOMA
     Dosage: 24 Gy
     Route: 065

REACTIONS (7)
  - Seroma [Unknown]
  - Wound dehiscence [Unknown]
  - Abscess [Unknown]
  - Fibrosis [Unknown]
  - Fistula [Unknown]
  - Neuritis [Unknown]
  - Off label use [Unknown]
